FAERS Safety Report 21654768 (Version 3)
Quarter: 2025Q1

REPORT INFORMATION
  Report Type: Report from Study
  Country: US (occurrence: US)
  Receive Date: 20221129
  Receipt Date: 20250203
  Transmission Date: 20250409
  Serious: Yes (Death, Hospitalization, Other)
  Sender: AMNEAL
  Company Number: US-AMNEAL PHARMACEUTICALS-2022-AMRX-03543

PATIENT
  Sex: Male

DRUGS (1)
  1. CARBIDOPA\LEVODOPA [Suspect]
     Active Substance: CARBIDOPA\LEVODOPA
     Indication: Parkinson^s disease
     Dosage: 36.25/ 145 MG, 3 CAPSULES, QID
     Route: 048

REACTIONS (7)
  - Influenza [Fatal]
  - Pneumonia [Fatal]
  - Feeding disorder [Fatal]
  - Dementia [Unknown]
  - Abnormal behaviour [Unknown]
  - Tremor [Unknown]
  - Up and down phenomenon [Unknown]
